FAERS Safety Report 15256459 (Version 1)
Quarter: 2018Q3

REPORT INFORMATION
  Report Type: Spontaneous
  Country: US (occurrence: US)
  Receive Date: 20180808
  Receipt Date: 20180808
  Transmission Date: 20181010
  Serious: No
  Sender: FDA-Public Use
  Company Number: US-SA-2018SA215186

PATIENT
  Sex: Female

DRUGS (11)
  1. ESCITALOPRAM [Concomitant]
     Active Substance: ESCITALOPRAM OXALATE
  2. TIZANIDINE HCL [Concomitant]
     Active Substance: TIZANIDINE HYDROCHLORIDE
  3. AUBAGIO [Suspect]
     Active Substance: TERIFLUNOMIDE
     Dosage: 1 DF, QD
     Route: 048
     Dates: start: 20180728
  4. TRIAMTERENE. [Concomitant]
     Active Substance: TRIAMTERENE
     Dosage: UNK UNK, BID
  5. COLLAGEN [Concomitant]
     Active Substance: COLLAGEN
  6. PRENATAL VITAMINS [MINERALS NOS;VITAMINS NOS] [Concomitant]
  7. FISH OIL [Concomitant]
     Active Substance: FISH OIL
  8. BIOTIN [Concomitant]
     Active Substance: BIOTIN
  9. LOSARTAN POTASSSIUM [Concomitant]
  10. NAPROXEN. [Concomitant]
     Active Substance: NAPROXEN
  11. BACLOFEN. [Concomitant]
     Active Substance: BACLOFEN

REACTIONS (3)
  - Nausea [Unknown]
  - Musculoskeletal discomfort [Unknown]
  - Joint instability [Unknown]
